FAERS Safety Report 8011370-X (Version None)
Quarter: 2011Q4

REPORT INFORMATION
  Report Type: 
  Country: None (occurrence: None)
  Receive Date: 20111228
  Receipt Date: 20111228
  Transmission Date: 20120403
  Serious: Yes (Death)
  Sender: FDA-Public Use
  Company Number: None

PATIENT
  Sex: Male
  Weight: 90.718 kg

DRUGS (1)
  1. CHANTIX [Suspect]
     Route: 048

REACTIONS (6)
  - PULMONARY THROMBOSIS [None]
  - ELECTROCARDIOGRAM ABNORMAL [None]
  - ABNORMAL DREAMS [None]
  - CARDIAC ARREST [None]
  - CHEST PAIN [None]
  - VARICOSE VEIN [None]
